FAERS Safety Report 6679822-2 (Version None)
Quarter: 2010Q2

REPORT INFORMATION
  Report Type: 
  Country: None (occurrence: None)
  Receive Date: 20100413
  Receipt Date: 20091116
  Transmission Date: 20101027
  Serious: No
  Sender: FDA-Public Use
  Company Number: US-ASTRAZENECA-2009UW21774

PATIENT
  Age: 87 Year
  Sex: Female
  Weight: 49.9 kg

DRUGS (7)
  1. TENORMIN [Suspect]
     Indication: ATRIAL FIBRILLATION
     Route: 048
  2. AMLODIPINE [Concomitant]
  3. ROLAIDS [Concomitant]
  4. ECOTRIN [Concomitant]
  5. OMEGA 3 OIL [Concomitant]
  6. VITAMIN TAB [Concomitant]
  7. CALCIUM [Concomitant]

REACTIONS (3)
  - BLOOD PRESSURE FLUCTUATION [None]
  - BLOOD PRESSURE INCREASED [None]
  - PALPITATIONS [None]
